FAERS Safety Report 26183515 (Version 1)
Quarter: 2025Q4

REPORT INFORMATION
  Report Type: Spontaneous
  Country: US (occurrence: US)
  Receive Date: 20251221
  Receipt Date: 20251221
  Transmission Date: 20260117
  Serious: No
  Sender: JOHNSON AND JOHNSON
  Company Number: US-JNJFOC-20251209737

PATIENT
  Age: 82 Year
  Sex: Male

DRUGS (3)
  1. INLEXZO [Suspect]
     Active Substance: GEMCITABINE
     Indication: Carcinoma in situ
     Route: 043
     Dates: start: 20251106, end: 20251204
  2. INLEXZO [Suspect]
     Active Substance: GEMCITABINE
  3. prophyolactic antibiotic [Concomitant]
     Indication: Product used for unknown indication
     Route: 048

REACTIONS (1)
  - Cystitis noninfective [Recovering/Resolving]

NARRATIVE: CASE EVENT DATE: 20251204
